FAERS Safety Report 8080797-2 (Version None)
Quarter: 2012Q1

REPORT INFORMATION
  Report Type: 
  Country: None (occurrence: None)
  Receive Date: 20120130
  Receipt Date: 20120125
  Transmission Date: 20120608
  Serious: Yes (Hospitalization, Other)
  Sender: FDA-Public Use
  Company Number: US-JNJFOC-20100805556

PATIENT

DRUGS (2)
  1. LEVAQUIN [Suspect]
     Indication: URINARY TRACT INFECTION
     Route: 048
     Dates: start: 20050101, end: 20080101
  2. LEVAQUIN [Suspect]
     Route: 048
     Dates: start: 20091010

REACTIONS (3)
  - BURSITIS [None]
  - TENDON RUPTURE [None]
  - TENDONITIS [None]
